FAERS Safety Report 23843618 (Version 1)
Quarter: 2024Q2

REPORT INFORMATION
  Report Type: Spontaneous
  Country: GB (occurrence: GB)
  Receive Date: 20240510
  Receipt Date: 20240510
  Transmission Date: 20240716
  Serious: Yes (Hospitalization, Other)
  Sender: FDA-Public Use
  Company Number: GB-ANIPHARMA-2024-UK-000070

PATIENT
  Age: 63 Year
  Sex: Female

DRUGS (1)
  1. ANASTROZOLE [Suspect]
     Active Substance: ANASTROZOLE
     Indication: Adverse drug reaction
     Dosage: DOSE TEXT: ONCE A DAY
     Dates: start: 20231108, end: 20240327

REACTIONS (5)
  - Blood pressure increased [Recovered/Resolved]
  - Uterine pain [Recovered/Resolved]
  - Uterine polyp [Recovered/Resolved]
  - Abdominal pain [Unknown]
  - Endometrial hyperplasia [Unknown]

NARRATIVE: CASE EVENT DATE: 20240331
